FAERS Safety Report 8781286 (Version 3)
Quarter: 2013Q1

REPORT INFORMATION
  Report Type: Spontaneous
  Country: US (occurrence: US)
  Receive Date: 20120913
  Receipt Date: 20130318
  Transmission Date: 20140127
  Serious: Yes (Other)
  Sender: FDA-Public Use
  Company Number: US-PFIZER INC-2012223885

PATIENT
  Age: 42 Year
  Sex: Female
  Weight: 108 kg

DRUGS (11)
  1. LYRICA [Suspect]
     Indication: FIBROMYALGIA
     Dosage: 75 MG, DAILY
  2. LYRICA [Suspect]
     Dosage: UNK
  3. LYRICA [Suspect]
     Dosage: 300 MG, 2X/DAY
     Route: 048
  4. LYRICA [Suspect]
     Dosage: 200 MG, 1X/DAY
     Route: 048
  5. PROZAC [Concomitant]
     Indication: DEPRESSION
     Dosage: 20 MG, DAILY
     Route: 048
  6. SEROQUEL [Concomitant]
     Indication: DEPRESSION
     Dosage: 150 MG, DAILY
  7. LORTAB [Concomitant]
     Indication: PAIN
     Dosage: 7.5 MG, FOUR TO FIVE TIMES A DAY
  8. LORTAB 10 [Concomitant]
     Dosage: 500MG-10 MG EVERY 4-6 HOURS MAX 5 PER DAY
     Route: 048
  9. ZANAFLEX [Concomitant]
     Dosage: 4 MG, 2X/DAY NEEDED
     Route: 048
  10. NEXIUM [Concomitant]
     Dosage: 40 MG, 1X/DAY
     Route: 048
  11. ZOCOR [Concomitant]
     Dosage: 20 MG, 1X/DAY AT BEDTIME
     Route: 048

REACTIONS (12)
  - Foot fracture [Recovered/Resolved]
  - Meniscus injury [Recovering/Resolving]
  - Arthritis [Recovering/Resolving]
  - Drug ineffective [Unknown]
  - Drug withdrawal syndrome [Recovered/Resolved]
  - Feeling jittery [Recovered/Resolved]
  - Feeling cold [Recovered/Resolved]
  - Hyperhidrosis [Recovered/Resolved]
  - Decreased appetite [Recovered/Resolved]
  - Chills [Recovered/Resolved]
  - Pain [Recovered/Resolved]
  - Influenza like illness [Recovered/Resolved]
